FAERS Safety Report 11157576 (Version 1)
Quarter: 2015Q2

REPORT INFORMATION
  Report Type: Spontaneous
  Country: US (occurrence: None)
  Receive Date: 20150601
  Receipt Date: 20150601
  Transmission Date: 20150821
  Serious: Yes (Hospitalization)
  Sender: FDA-Public Use
  Company Number: None

PATIENT
  Age: 88 Year
  Sex: Male
  Weight: 99.8 kg

DRUGS (1)
  1. ENOXAPARIN [Suspect]
     Active Substance: ENOXAPARIN
     Indication: DEEP VEIN THROMBOSIS
     Route: 042
     Dates: start: 20150129, end: 20150205

REACTIONS (3)
  - Skin necrosis [None]
  - Rash [None]
  - International normalised ratio increased [None]

NARRATIVE: CASE EVENT DATE: 20150205
